FAERS Safety Report 8161865-3 (Version None)
Quarter: 2012Q1

REPORT INFORMATION
  Report Type: 
  Country: None (occurrence: None)
  Receive Date: 20120224
  Receipt Date: 20110805
  Transmission Date: 20120608
  Serious: No
  Sender: FDA-Public Use
  Company Number: US-BRISTOL-MYERS SQUIBB COMPANY-15951122

PATIENT

DRUGS (3)
  1. LANTUS [Suspect]
     Indication: TYPE 2 DIABETES MELLITUS
     Dosage: PARENTERAL INJECTION SOL 100 IU/ML, ALSO VIA ROUTE SC 2011-2011,2011-UNK. 1DF=TOTAL 11 UNITS.
     Route: 058
     Dates: start: 20110101
  2. METFORMIN HCL [Suspect]
     Indication: TYPE 2 DIABETES MELLITUS
     Route: 065
  3. VITAMIN TAB [Concomitant]

REACTIONS (3)
  - NASOPHARYNGITIS [None]
  - BLOOD GLUCOSE INCREASED [None]
  - WEIGHT DECREASED [None]
